FAERS Safety Report 19092613 (Version 1)
Quarter: 2021Q2

REPORT INFORMATION
  Report Type: Spontaneous
  Country: US (occurrence: US)
  Receive Date: 20210405
  Receipt Date: 20210405
  Transmission Date: 20210717
  Serious: Yes (Other)
  Sender: FDA-Public Use
  Company Number: US-SEBELA IRELAND LIMITED-2021SEB00037

PATIENT
  Sex: Female
  Weight: 58.96 kg

DRUGS (8)
  1. PEXEVA [Suspect]
     Active Substance: PAROXETINE MESYLATE
     Dosage: UNK
     Route: 048
     Dates: start: 20210319
  2. PEXEVA [Suspect]
     Active Substance: PAROXETINE MESYLATE
     Dosage: ^INCREASED HER DOSE SLOWLY^
     Route: 048
  3. PEXEVA [Suspect]
     Active Substance: PAROXETINE MESYLATE
     Indication: ANXIETY
     Dosage: 20 MG ^ACHIEVED BY SPLITING THE TABLETS IN HALF^
     Route: 048
     Dates: start: 2018
  4. PEXEVA [Suspect]
     Active Substance: PAROXETINE MESYLATE
     Indication: ANXIETY
     Dosage: 20 MG, 1X/DAY
     Route: 048
  5. PEXEVA [Suspect]
     Active Substance: PAROXETINE MESYLATE
     Indication: ANXIETY
     Dosage: UNK
     Route: 048
     Dates: start: 2009, end: 2018
  6. PEXEVA [Suspect]
     Active Substance: PAROXETINE MESYLATE
     Dosage: 18 MG
     Route: 048
  7. PEXEVA [Suspect]
     Active Substance: PAROXETINE MESYLATE
     Indication: ANXIETY
     Dosage: 20 MG
     Route: 048
  8. PEXEVA [Suspect]
     Active Substance: PAROXETINE MESYLATE
     Dosage: ^TRIED TO GO DOWN ON HER PEXEVA DOSE^
     Route: 048
     Dates: start: 2018

REACTIONS (15)
  - COVID-19 [Unknown]
  - Paraesthesia [Not Recovered/Not Resolved]
  - Middle insomnia [Not Recovered/Not Resolved]
  - Abortion of ectopic pregnancy [Recovered/Resolved]
  - Exposure during pregnancy [Recovered/Resolved]
  - Cerebral disorder [Unknown]
  - Panic attack [Unknown]
  - Dizziness [Not Recovered/Not Resolved]
  - Insomnia [Not Recovered/Not Resolved]
  - Weight fluctuation [Unknown]
  - Epistaxis [Not Recovered/Not Resolved]
  - Ectopic pregnancy [Recovered/Resolved]
  - Antidepressant discontinuation syndrome [Not Recovered/Not Resolved]
  - Sensory disturbance [Not Recovered/Not Resolved]
  - Unevaluable event [Not Recovered/Not Resolved]

NARRATIVE: CASE EVENT DATE: 2017
